FAERS Safety Report 17103144 (Version 1)
Quarter: 2019Q4

REPORT INFORMATION
  Report Type: Report from Study
  Country: US (occurrence: US)
  Receive Date: 20191203
  Receipt Date: 20191203
  Transmission Date: 20200122
  Serious: Yes (Death)
  Sender: FDA-Public Use
  Company Number: US-ROCHE-2489104

PATIENT
  Age: 88 Year
  Sex: Female

DRUGS (12)
  1. TIMOLOL. [Concomitant]
     Active Substance: TIMOLOL
  2. LUCENTIS [Suspect]
     Active Substance: RANIBIZUMAB
     Indication: NEOVASCULAR AGE-RELATED MACULAR DEGENERATION
     Route: 065
     Dates: start: 20180510, end: 20181029
  3. FOLIC ACID. [Concomitant]
     Active Substance: FOLIC ACID
  4. EYLEA [Concomitant]
     Active Substance: AFLIBERCEPT
     Route: 065
     Dates: start: 20190107
  5. ZIOPTAN [Concomitant]
     Active Substance: TAFLUPROST
  6. METOPROLOL. [Concomitant]
     Active Substance: METOPROLOL
  7. PRADAXA [Concomitant]
     Active Substance: DABIGATRAN ETEXILATE MESYLATE
  8. GABAPENTIN. [Concomitant]
     Active Substance: GABAPENTIN
  9. AVASTIN [Concomitant]
     Active Substance: BEVACIZUMAB
  10. FUROSEMIDE. [Concomitant]
     Active Substance: FUROSEMIDE
  11. FLUOXETINE [Concomitant]
     Active Substance: FLUOXETINE HYDROCHLORIDE
  12. BENADRYL [Concomitant]
     Active Substance: DIPHENHYDRAMINE HYDROCHLORIDE

REACTIONS (1)
  - Death [Fatal]

NARRATIVE: CASE EVENT DATE: 20190215
